FAERS Safety Report 24360571 (Version 1)
Quarter: 2024Q3

REPORT INFORMATION
  Report Type: Spontaneous
  Country: GB (occurrence: GB)
  Receive Date: 20240925
  Receipt Date: 20240925
  Transmission Date: 20241017
  Serious: Yes (Hospitalization, Other)
  Sender: DEXCEL
  Company Number: None

PATIENT

DRUGS (8)
  1. OMEPRAZOLE [Interacting]
     Active Substance: OMEPRAZOLE
  2. FUROSEMIDE [Interacting]
     Active Substance: FUROSEMIDE
     Dosage: FUROSEMIDE 40 MG TABLETS ONE TO BE TAKEN EACH MORNING
  3. AspirinASPIRIN (Specific Substance SUB217) [Concomitant]
     Dosage: ASPIRIN 75 MG DISPERSIBLE TABLETS ONE TO BE TAKEN EACH DAY AT LUNCHTIME
  4. RamiprilRAMIPRIL (Specific Substance SUB743) [Concomitant]
     Dosage: RAMIPRIL 5 MG CAPSULES ONE TO BE TAKEN EACH DAY
  5. ThiamineTHIAMINE [Concomitant]
     Dosage: THIAMINE 100 MG TABLETS ONE TO BE TAKEN THREE TIMES A DAY
  6. TicagrelorTICAGRELOR (Specific Substance SUB9171) [Concomitant]
     Dosage: TICAGRELOR 90 MG TABLETS ONE TO BE TAKEN TWICE A DAY
  7. SitagliptinSITAGLIPTIN (Specific Substance SUB9149) [Concomitant]
     Dosage: SITAGLIPTIN 50 MG TABLETS ONE BD
  8. MetforminMETFORMIN (Specific Substance SUB8487) [Concomitant]
     Dosage: METFORMIN 1 G MODIFIED - RELEASE TABLETS ONE WITH BREAKFAST AND ONE WITH EVENING?MEAL

REACTIONS (2)
  - Hypomagnesaemia [Recovered/Resolved]
  - Drug interaction [Unknown]
